FAERS Safety Report 9381844 (Version 2)
Quarter: 2014Q1

REPORT INFORMATION
  Report Type: Spontaneous
  Country: FR (occurrence: FR)
  Receive Date: 20130703
  Receipt Date: 20140103
  Transmission Date: 20141002
  Serious: Yes (Hospitalization, Other)
  Sender: FDA-Public Use
  Company Number: FR-PFIZER INC-2013192208

PATIENT
  Age: 33 Year
  Sex: Female

DRUGS (2)
  1. PROSTINE E2 [Suspect]
     Indication: LABOUR INDUCTION
     Dosage: 2 MG, UNK
     Route: 067
     Dates: start: 20031009, end: 20031009
  2. SYNTOCINON [Suspect]
     Indication: LABOUR INDUCTION
     Dosage: UNK
     Route: 041
     Dates: start: 20031009, end: 20031009

REACTIONS (3)
  - Postpartum haemorrhage [Recovered/Resolved with Sequelae]
  - Urinary tract infection [Unknown]
  - Incorrect dose administered [Recovered/Resolved]
